FAERS Safety Report 4693754-0 (Version None)
Quarter: 2005Q2

REPORT INFORMATION
  Report Type: 
  Country: None (occurrence: None)
  Receive Date: 20050615
  Receipt Date: 20050521
  Transmission Date: 20051028
  Serious: Yes (Hospitalization)
  Sender: FDA-Public Use
  Company Number: 12978292

PATIENT
  Age: 71 Year
  Sex: Male

DRUGS (13)
  1. CETUXIMAB [Suspect]
     Indication: COLON CANCER
     Dosage: 0 MILLIGRAM 2/1 CYCLE IV
     Route: 042
     Dates: start: 20050405, end: 20050405
  2. FLUOROURACIL [Suspect]
     Indication: COLON CANCER
     Dosage: 400 MILLIGRAM/SQ. METER 1/1 CYCLE
     Route: 042
     Dates: start: 20050511, end: 20050511
  3. IRINOTECAN [Suspect]
     Indication: COLON CANCER
     Dosage: 180 MILLIGRAM/SQ. METER 1/1 CYCLE IV
     Route: 042
     Dates: start: 20050510, end: 20050510
  4. LEUCOVORIN CALCIUM [Suspect]
     Dosage: 400 MG /SQ. METER 1/1 DAY IV
     Route: 042
     Dates: start: 20050510, end: 20050510
  5. ASPIRIN [Concomitant]
  6. CARDIZEM [Concomitant]
  7. COUMADIN [Concomitant]
  8. LASIX [Concomitant]
  9. METOPROLOL TARTRATE [Concomitant]
  10. PLAVIX [Concomitant]
  11. PROTONIX [Concomitant]
  12. VASOTEC [Concomitant]
  13. ZOCOR [Concomitant]

REACTIONS (4)
  - ANGINA PECTORIS [None]
  - HYPERSENSITIVITY [None]
  - MYOCARDIAL ISCHAEMIA [None]
  - TROPONIN I INCREASED [None]
